FAERS Safety Report 8994898 (Version 2)
Quarter: 2013Q1

REPORT INFORMATION
  Report Type: Spontaneous
  Country: JP (occurrence: None)
  Receive Date: 20121221
  Receipt Date: 20130104
  Transmission Date: 20140127
  Serious: No
  Sender: FDA-Public Use
  Company Number: THQ2012A11192

PATIENT
  Age: 41 Year
  Sex: Male

DRUGS (4)
  1. TAKEPRON (LANSOPRAZOLE) [Suspect]
     Route: 048
     Dates: start: 20121105
  2. CELECOX [Suspect]
     Indication: PAIN IN EXTREMITY
     Dosage: (100 MG,2 IN 1 D)
     Route: 048
     Dates: start: 20121118
  3. LOBU [Suspect]
     Dosage: (60 MG,3 IN 1 D)
     Route: 048
     Dates: start: 20121105, end: 20121117
  4. ALINAMIN-F (FURSULTIAMINE) [Concomitant]

REACTIONS (1)
  - Urethral haemorrhage [None]
